FAERS Safety Report 14936539 (Version 5)
Quarter: 2024Q1

REPORT INFORMATION
  Report Type: Other
  Country: JP (occurrence: JP)
  Receive Date: 20180525
  Receipt Date: 20240318
  Transmission Date: 20240410
  Serious: Yes (Other)
  Sender: FDA-Public Use
  Company Number: JP-002147023-PHJP2018JP011216

PATIENT
  Age: 58 Year
  Sex: Female

DRUGS (14)
  1. OMALIZUMAB [Suspect]
     Active Substance: OMALIZUMAB
     Indication: Chronic spontaneous urticaria
     Route: 058
     Dates: start: 20180129
  2. OMALIZUMAB [Suspect]
     Active Substance: OMALIZUMAB
     Route: 058
     Dates: start: 20180226
  3. OMALIZUMAB [Suspect]
     Active Substance: OMALIZUMAB
     Route: 058
     Dates: start: 20180326
  4. BETAMETHASONE [Concomitant]
     Active Substance: BETAMETHASONE\BETAMETHASONE DIPROPIONATE
  5. TALION [Concomitant]
  6. BEPOTASTINE BESYLATE [Concomitant]
     Active Substance: BEPOTASTINE BESYLATE
  7. BONALON [Concomitant]
     Active Substance: ALENDRONATE SODIUM
  8. REBAMIPIDE [Concomitant]
     Active Substance: REBAMIPIDE
  9. CELECOXIB [Concomitant]
     Active Substance: CELECOXIB
  10. RHEUMATREX [Concomitant]
     Active Substance: METHOTREXATE SODIUM
  11. METHOTREXATE [Concomitant]
     Active Substance: METHOTREXATE
  12. XYZAL [Concomitant]
     Active Substance: LEVOCETIRIZINE DIHYDROCHLORIDE
  13. BILASTINE [Concomitant]
     Active Substance: BILASTINE
  14. RINDERON [Concomitant]

REACTIONS (1)
  - Psoriatic arthropathy [Recovering/Resolving]

NARRATIVE: CASE EVENT DATE: 20180409
